FAERS Safety Report 7267792-8 (Version None)
Quarter: 2011Q1

REPORT INFORMATION
  Report Type: 
  Country: None (occurrence: None)
  Receive Date: 20110201
  Receipt Date: 20110125
  Transmission Date: 20110831
  Serious: Yes (Death, Hospitalization)
  Sender: FDA-Public Use
  Company Number: A0909142A

PATIENT
  Age: 70 Year
  Sex: Male

DRUGS (9)
  1. LISINOPRIL [Concomitant]
  2. INSULIN [Concomitant]
  3. SPECTRAVIT [Concomitant]
  4. SPIRONOLACTONE [Concomitant]
  5. GLYBURIDE [Concomitant]
  6. COUMADIN [Concomitant]
  7. ASPIRIN [Concomitant]
  8. COREG [Suspect]
     Indication: CARDIAC FAILURE CONGESTIVE
     Dosage: 3.125MG TWICE PER DAY
     Route: 048
     Dates: start: 20020101, end: 20050101
  9. ASCORBIC ACID [Concomitant]

REACTIONS (3)
  - CARDIAC FAILURE CONGESTIVE [None]
  - DIABETES MELLITUS [None]
  - DYSPNOEA [None]
